FAERS Safety Report 23610879 (Version 1)
Quarter: 2024Q1

REPORT INFORMATION
  Report Type: Spontaneous
  Country: CN (occurrence: CN)
  Receive Date: 20240308
  Receipt Date: 20240308
  Transmission Date: 20240410
  Serious: Yes (Other)
  Sender: FDA-Public Use
  Company Number: CN-PFIZER INC-PV202400031880

PATIENT
  Age: 52 Year
  Sex: Male
  Weight: 62 kg

DRUGS (2)
  1. CYTARABINE [Suspect]
     Active Substance: CYTARABINE
     Indication: Acute myeloid leukaemia
     Dosage: 1.5 G, 2X/DAY
     Route: 041
     Dates: start: 20240229, end: 20240303
  2. SODIUM CHLORIDE [Concomitant]
     Active Substance: SODIUM CHLORIDE
     Indication: Vehicle solution use
     Dosage: 250 ML, 2X/DAY
     Route: 041
     Dates: start: 20240229, end: 20240303

REACTIONS (4)
  - Pruritus [Recovering/Resolving]
  - Skin warm [Recovering/Resolving]
  - Body temperature increased [Recovering/Resolving]
  - Rash erythematous [Recovering/Resolving]

NARRATIVE: CASE EVENT DATE: 20240229
